FAERS Safety Report 12188275 (Version 1)
Quarter: 2016Q1

REPORT INFORMATION
  Report Type: Report from Study
  Country: MX (occurrence: MX)
  Receive Date: 20160317
  Receipt Date: 20160317
  Transmission Date: 20160526
  Serious: Yes (Other)
  Sender: FDA-Public Use
  Company Number: PHHY2016MX035584

PATIENT
  Sex: Female

DRUGS (5)
  1. TRILEPTAL [Suspect]
     Active Substance: OXCARBAZEPINE
     Indication: SECRETION DISCHARGE
  2. AROPAX [Concomitant]
     Active Substance: PAROXETINE HYDROCHLORIDE
     Indication: PRODUCT USED FOR UNKNOWN INDICATION
     Dosage: UNK
     Route: 065
  3. ATACAND [Concomitant]
     Active Substance: CANDESARTAN CILEXETIL
     Indication: PRODUCT USED FOR UNKNOWN INDICATION
     Dosage: 16 MG, UNK
     Route: 065
  4. RAPIX [Concomitant]
     Indication: PRODUCT USED FOR UNKNOWN INDICATION
     Dosage: UNK
     Route: 065
  5. TRILEPTAL [Suspect]
     Active Substance: OXCARBAZEPINE
     Indication: SYNCOPE
     Dosage: 1 DF, QD (21 ML OF 60 MG/100 ML)
     Route: 065

REACTIONS (11)
  - Hypoaesthesia oral [Unknown]
  - Hypoaesthesia [Unknown]
  - Fatigue [Unknown]
  - Secretion discharge [Unknown]
  - Speech disorder [Unknown]
  - Product use issue [Not Recovered/Not Resolved]
  - Epilepsy [Unknown]
  - Headache [Unknown]
  - Movement disorder [Unknown]
  - Dizziness [Unknown]
  - Vision blurred [Unknown]
